FAERS Safety Report 6260084-5 (Version None)
Quarter: 2009Q3

REPORT INFORMATION
  Report Type: 
  Country: None (occurrence: None)
  Receive Date: 20090708
  Receipt Date: 20090622
  Transmission Date: 20100115
  Serious: Yes (Other)
  Sender: FDA-Public Use
  Company Number: US-NOVOPROD-289100

PATIENT
  Sex: Female
  Weight: 98.413 kg

DRUGS (2)
  1. NORDITROPIN NORDIFLEX [Suspect]
     Indication: GROWTH HORMONE DEFICIENCY
     Dosage: UNKNOWN
     Dates: start: 20090327, end: 20090707
  2. VITAMIN A [Concomitant]
     Indication: VITAMIN D DEFICIENCY

REACTIONS (1)
  - MENINGIOMA [None]
